FAERS Safety Report 7846417-4 (Version None)
Quarter: 2011Q4

REPORT INFORMATION
  Report Type: 
  Country: None (occurrence: None)
  Receive Date: 20111025
  Receipt Date: 20111025
  Transmission Date: 20120403
  Serious: Yes (Hospitalization)
  Sender: FDA-Public Use
  Company Number: None

PATIENT
  Sex: Female
  Weight: 66.6 kg

DRUGS (1)
  1. RITUXIMAB [Suspect]
     Indication: SYSTEMIC LUPUS ERYTHEMATOSUS
     Dosage: 1000 MG
     Route: 042

REACTIONS (10)
  - CONDITION AGGRAVATED [None]
  - PRURITUS [None]
  - HYPERHIDROSIS [None]
  - SYSTEMIC LUPUS ERYTHEMATOSUS [None]
  - LIP SWELLING [None]
  - NAUSEA [None]
  - HYPOTENSION [None]
  - DIARRHOEA [None]
  - INFUSION RELATED REACTION [None]
  - EYE SWELLING [None]
